FAERS Safety Report 25427242 (Version 1)
Quarter: 2025Q2

REPORT INFORMATION
  Report Type: Spontaneous
  Country: BE (occurrence: BE)
  Receive Date: 20250612
  Receipt Date: 20250612
  Transmission Date: 20250716
  Serious: Yes (Other)
  Sender: AMGEN
  Company Number: BE-AMGEN-BELSP2025111992

PATIENT

DRUGS (1)
  1. KYPROLIS [Suspect]
     Active Substance: CARFILZOMIB
     Indication: Product used for unknown indication
     Dosage: 70 MILLIGRAM/SQ. METER, QWK
     Route: 065

REACTIONS (2)
  - Respiratory distress [Unknown]
  - Lung infiltration [Unknown]
